FAERS Safety Report 7414917-7 (Version None)
Quarter: 2011Q2

REPORT INFORMATION
  Report Type: 
  Country: None (occurrence: None)
  Receive Date: 20110414
  Receipt Date: 20101020
  Transmission Date: 20111010
  Serious: Yes (Life-Threatening, Other)
  Sender: FDA-Public Use
  Company Number: US-BAYER-201029953NA

PATIENT
  Age: 32 Year
  Sex: Female
  Weight: 75 kg

DRUGS (5)
  1. YAZ [Suspect]
     Indication: PREMENSTRUAL SYNDROME
  2. YAZ [Suspect]
     Indication: CONTRACEPTION
     Route: 048
     Dates: start: 20080301, end: 20080901
  3. YAZ [Suspect]
     Indication: ACNE
  4. SKELAXIN [Concomitant]
     Dosage: UNK
     Dates: start: 20081001
  5. AMOXICILLIN [Concomitant]
     Dosage: UNK
     Dates: start: 20081001

REACTIONS (5)
  - DEEP VEIN THROMBOSIS [None]
  - MENTAL DISORDER [None]
  - DEPRESSION [None]
  - PULMONARY INFARCTION [None]
  - PULMONARY EMBOLISM [None]
